FAERS Safety Report 5179698-9 (Version None)
Quarter: 2006Q4

REPORT INFORMATION
  Report Type: 
  Country: None (occurrence: None)
  Receive Date: 20061211
  Receipt Date: 20061127
  Transmission Date: 20070319
  Serious: Yes (Other)
  Sender: FDA-Public Use
  Company Number: 2006149126

PATIENT
  Sex: Male

DRUGS (2)
  1. VIAGRA [Suspect]
  2. ORGANIC NITRATES (ORGANIC NITRATES) [Concomitant]

REACTIONS (2)
  - CARDIAC DISORDER [None]
  - SELF-MEDICATION [None]
